FAERS Safety Report 9665783 (Version 1)
Quarter: 2013Q4

REPORT INFORMATION
  Report Type: Spontaneous
  Country: US (occurrence: None)
  Receive Date: 20131031
  Receipt Date: 20131031
  Transmission Date: 20140711
  Serious: No
  Sender: FDA-Public Use
  Company Number: None

PATIENT
  Age: 36 Year
  Sex: Female
  Weight: 102.06 kg

DRUGS (2)
  1. FENTANYL 25MCG WATSON LABORATORIES [Suspect]
     Indication: ANALGESIC THERAPY
     Dosage: 1 PATCH EVERY 72 HOURS APPLIED TO A SURFACT, USUALLY THE SKIN
     Dates: start: 20131029, end: 20131101
  2. FENTANYL 25MCG WATSON LABORATORIES [Suspect]
     Indication: BLADDER DISORDER
     Dosage: 1 PATCH EVERY 72 HOURS APPLIED TO A SURFACT, USUALLY THE SKIN
     Dates: start: 20131029, end: 20131101

REACTIONS (4)
  - Soft tissue disorder [None]
  - Myalgia [None]
  - Application site pain [None]
  - Pain [None]
